FAERS Safety Report 14863088 (Version 2)
Quarter: 2020Q1

REPORT INFORMATION
  Report Type: Report from Study
  Country: BE (occurrence: BE)
  Receive Date: 20180508
  Receipt Date: 20200103
  Transmission Date: 20200409
  Serious: Yes (Hospitalization, Other)
  Sender: FDA-Public Use
  Company Number: BE-MYLANLABS-2018M1029638

PATIENT
  Sex: Female
  Weight: 69 kg

DRUGS (12)
  1. BEVACIZUMAB. [Suspect]
     Active Substance: BEVACIZUMAB
     Indication: OVARIAN CANCER
     Dosage: 990 MG, 3XW
     Route: 042
     Dates: start: 20160128
  2. BEVACIZUMAB. [Suspect]
     Active Substance: BEVACIZUMAB
     Dosage: 1005 MG, 3XW
     Route: 042
     Dates: start: 20160218, end: 20160630
  3. PACLITAXEL. [Suspect]
     Active Substance: PACLITAXEL
     Indication: OVARIAN CANCER
     Dosage: 135 MG/M2, QW
     Route: 042
     Dates: start: 20160128
  4. CARBOPLATIN. [Suspect]
     Active Substance: CARBOPLATIN
     Dosage: 1 UNK, 3XW (4 AUC, 3XW)
     Route: 042
     Dates: start: 20160218
  5. STEOVIT D3 [Concomitant]
     Active Substance: CALCIUM CARBONATE\CHOLECALCIFEROL
     Indication: OSTEOPOROSIS
     Dosage: UNK
     Route: 065
     Dates: start: 2016
  6. DOMINAL (PROTHIPENDYL HYDROCHLORIDE) [Concomitant]
     Active Substance: PROTHIPENDYL HYDROCHLORIDE
     Indication: DEPRESSION
     Dosage: UNK
     Route: 065
     Dates: start: 2016
  7. CARBOPLATIN. [Suspect]
     Active Substance: CARBOPLATIN
     Indication: OVARIAN CANCER
     Dosage: 1, 3XW(3.81 AUC, 3XW)
     Route: 042
     Dates: start: 20160128
  8. FRAXIPARINE [Concomitant]
     Active Substance: NADROPARIN CALCIUM
     Indication: HIP FRACTURE
     Dosage: UNK
     Route: 065
     Dates: start: 20161019, end: 20170119
  9. DAFALGAN [Concomitant]
     Active Substance: ACETAMINOPHEN
     Indication: HIP FRACTURE
     Dosage: UNK
     Route: 065
     Dates: start: 20161019
  10. FUROSEMIDE. [Concomitant]
     Active Substance: FUROSEMIDE
     Indication: OEDEMA PERIPHERAL
     Dosage: UNK
     Route: 065
     Dates: start: 20160330, end: 2016
  11. ALDACTAZINE [Concomitant]
     Active Substance: ALTHIAZIDE\SPIRONOLACTONE
     Indication: OEDEMA PERIPHERAL
     Dosage: UNK
     Route: 065
     Dates: start: 20160825
  12. BISOPROLOL [Concomitant]
     Active Substance: BISOPROLOL
     Indication: CARDIAC FAILURE
     Dosage: 2.5 MG, UNK
     Route: 065
     Dates: start: 2016

REACTIONS (15)
  - Neutropenia [Recovered/Resolved]
  - Anaemia [Recovered/Resolved]
  - Constipation [Not Recovered/Not Resolved]
  - Cystitis [Recovered/Resolved]
  - Oedema peripheral [Recovered/Resolved]
  - Hip fracture [Recovered/Resolved]
  - Neuropathy peripheral [Not Recovered/Not Resolved]
  - Rhinorrhoea [Recovered/Resolved]
  - Alopecia [Not Recovered/Not Resolved]
  - Epistaxis [Recovered/Resolved]
  - Hypertension [Not Recovered/Not Resolved]
  - Asthenia [Not Recovered/Not Resolved]
  - Localised infection [Recovered/Resolved]
  - Pleural effusion [Not Recovered/Not Resolved]
  - Leukopenia [Recovered/Resolved]

NARRATIVE: CASE EVENT DATE: 201602
